FAERS Safety Report 9995642 (Version 1)
Quarter: 2014Q1

REPORT INFORMATION
  Report Type: Spontaneous
  Country: US (occurrence: None)
  Receive Date: 20140304
  Receipt Date: 20140304
  Transmission Date: 20141002
  Serious: Yes (Hospitalization)
  Sender: FDA-Public Use
  Company Number: RB-54671-2013

PATIENT
  Age: 28 Year
  Sex: Female

DRUGS (1)
  1. SUBUTEX 8 MG [Suspect]
     Indication: DRUG DEPENDENCE
     Dosage: (8 MG, SUBLINGUAL)
     Route: 060
     Dates: start: 201305, end: 2013

REACTIONS (1)
  - Drug withdrawal syndrome [None]
